FAERS Safety Report 14423541 (Version 10)
Quarter: 2021Q1

REPORT INFORMATION
  Report Type: Spontaneous
  Country: US (occurrence: US)
  Receive Date: 20180123
  Receipt Date: 20210308
  Transmission Date: 20210419
  Serious: No
  Sender: FDA-Public Use
  Company Number: US-PFIZER INC-2018027236

PATIENT
  Age: 81 Year
  Sex: Female
  Weight: 52 kg

DRUGS (3)
  1. BOSULIF [Suspect]
     Active Substance: BOSUTINIB MONOHYDRATE
     Dosage: 100 MG, UNK
  2. BOSULIF [Suspect]
     Active Substance: BOSUTINIB MONOHYDRATE
     Dosage: 100 MG, 1X/DAY
     Route: 048
  3. BOSULIF [Suspect]
     Active Substance: BOSUTINIB MONOHYDRATE
     Indication: CHRONIC MYELOID LEUKAEMIA (IN REMISSION)
     Dosage: 100 MG, 1X/DAY, (QD)
     Route: 048
     Dates: start: 20170614

REACTIONS (29)
  - Skin disorder [Unknown]
  - Memory impairment [Not Recovered/Not Resolved]
  - Dysphonia [Unknown]
  - Reading disorder [Unknown]
  - Skin discolouration [Unknown]
  - Condition aggravated [Not Recovered/Not Resolved]
  - Fall [Unknown]
  - Bradykinesia [Unknown]
  - Acrochordon [Unknown]
  - Acne [Unknown]
  - Immune system disorder [Not Recovered/Not Resolved]
  - Malaise [Unknown]
  - Pain in extremity [Unknown]
  - Abdominal pain upper [Unknown]
  - Eye disorder [Unknown]
  - Astigmatism [Unknown]
  - Product dose omission issue [Unknown]
  - Neoplasm progression [Unknown]
  - Tongue disorder [Unknown]
  - Stomatitis [Unknown]
  - Papule [Not Recovered/Not Resolved]
  - Fluid retention [Recovered/Resolved]
  - Insomnia [Unknown]
  - Chest pain [Unknown]
  - Food allergy [Unknown]
  - Nausea [Unknown]
  - Hypoacusis [Unknown]
  - Chest discomfort [Recovered/Resolved]
  - Confusional state [Unknown]

NARRATIVE: CASE EVENT DATE: 2017
